FAERS Safety Report 5133795-2 (Version None)
Quarter: 2006Q4

REPORT INFORMATION
  Report Type: 
  Country: None (occurrence: None)
  Receive Date: 20061018
  Receipt Date: 20061011
  Transmission Date: 20070319
  Serious: Yes (Other)
  Sender: FDA-Public Use
  Company Number: 148595USA

PATIENT
  Age: 48 Year
  Sex: Male

DRUGS (2)
  1. METOPROLOL TARTRATE [Suspect]
     Indication: HYPERTENSION
     Dosage: 100 MG (50 MG, 2 IN 1 D), ORAL
     Route: 048
     Dates: start: 20060401
  2. NPH INSULIN [Suspect]
     Indication: DIABETES MELLITUS

REACTIONS (2)
  - MACULAR DEGENERATION [None]
  - VISION BLURRED [None]
